FAERS Safety Report 9518191 (Version 1)
Quarter: 2013Q3

REPORT INFORMATION
  Report Type: Spontaneous
  Country: GB (occurrence: GB)
  Receive Date: 20130912
  Receipt Date: 20130912
  Transmission Date: 20140515
  Serious: No
  Sender: FDA-Public Use
  Company Number: GB-JNJFOC-20130900541

PATIENT
  Sex: Male

DRUGS (1)
  1. DUROGESIC DTRANS [Suspect]
     Indication: PAIN MANAGEMENT
     Route: 062

REACTIONS (3)
  - Mental disorder [Unknown]
  - Anxiety [Unknown]
  - Treatment noncompliance [Unknown]
